FAERS Safety Report 21140584 (Version 1)
Quarter: 2022Q3

REPORT INFORMATION
  Report Type: Report from Study
  Country: CO (occurrence: CO)
  Receive Date: 20220728
  Receipt Date: 20220728
  Transmission Date: 20221027
  Serious: Yes (Other)
  Sender: FDA-Public Use
  Company Number: CO-NOVOPROD-940678

PATIENT
  Age: 75 Year
  Sex: Female
  Weight: 97 kg

DRUGS (6)
  1. AMLODIPINE [Concomitant]
     Active Substance: AMLODIPINE BESYLATE
     Indication: Hypertension
     Dosage: 2 DAILY TABLETS
     Route: 048
     Dates: start: 2000
  2. FUROSEMIDE [Concomitant]
     Active Substance: FUROSEMIDE
     Indication: Fluid retention
     Dosage: 1 DAILY TABLET
     Route: 048
     Dates: start: 1981
  3. ASPIRIN [Concomitant]
     Active Substance: ASPIRIN
     Indication: Cardiovascular disorder
     Dosage: 1 DAILY TABLET
     Route: 048
     Dates: start: 1981
  4. VICTOZA [Suspect]
     Active Substance: LIRAGLUTIDE
     Indication: Type 2 diabetes mellitus
     Dosage: 1.8 MG, QD
     Route: 058
     Dates: start: 2000, end: 202107
  5. LEVEMIR [Suspect]
     Active Substance: INSULIN DETEMIR
     Indication: Type 2 diabetes mellitus
     Dosage: 18 IU, QD
     Route: 058
  6. VITAMIN C [Concomitant]
     Active Substance: ASCORBIC ACID
     Indication: Vitamin supplementation
     Dosage: UNK
     Dates: start: 2007

REACTIONS (5)
  - Diabetic retinopathy [Not Recovered/Not Resolved]
  - Osteopenia [Not Recovered/Not Resolved]
  - Bone demineralisation [Not Recovered/Not Resolved]
  - Cerebral ischaemia [Not Recovered/Not Resolved]
  - Refractory cytopenia with unilineage dysplasia [Not Recovered/Not Resolved]

NARRATIVE: CASE EVENT DATE: 20020101
